FAERS Safety Report 8342570 (Version 8)
Quarter: 2013Q4

REPORT INFORMATION
  Report Type: Spontaneous
  Country: US (occurrence: US)
  Receive Date: 20120118
  Receipt Date: 20131121
  Transmission Date: 20140711
  Serious: Yes (Other)
  Sender: FDA-Public Use
  Company Number: US-ROCHE-1006237

PATIENT
  Age: 19 Year
  Sex: Male
  Weight: 77.18 kg

DRUGS (6)
  1. ACCUTANE [Suspect]
     Indication: ACNE
     Route: 065
     Dates: start: 1998, end: 1999
  2. ACCUTANE [Suspect]
     Route: 065
     Dates: start: 20000919, end: 200105
  3. ACCUTANE [Suspect]
     Route: 065
     Dates: start: 2000, end: 2001
  4. ACCUTANE [Suspect]
     Dosage: IN MORNING AND EVENING
     Route: 048
     Dates: start: 19990619
  5. AMOXICILLIN [Concomitant]
  6. PREVIDENT [Concomitant]

REACTIONS (5)
  - Proctitis ulcerative [Unknown]
  - Inflammatory bowel disease [Unknown]
  - Depression [Unknown]
  - Gastrooesophageal reflux disease [Unknown]
  - Dry skin [Unknown]
